FAERS Safety Report 10677879 (Version 20)
Quarter: 2022Q1

REPORT INFORMATION
  Report Type: Spontaneous
  Country: BR (occurrence: BR)
  Receive Date: 20141229
  Receipt Date: 20220318
  Transmission Date: 20220423
  Serious: Yes (Disabling, Other)
  Sender: FDA-Public Use
  Company Number: BR-PFIZER INC-2014348198

PATIENT
  Age: 42 Year
  Sex: Female
  Weight: 59 kg

DRUGS (10)
  1. ENBREL [Suspect]
     Active Substance: ETANERCEPT
     Indication: Psoriatic arthropathy
     Dosage: 50 MG, WEEKLY
     Route: 058
     Dates: start: 201306, end: 2019
  2. ENBREL [Suspect]
     Active Substance: ETANERCEPT
     Dosage: UNK
     Route: 065
  3. ENBREL [Suspect]
     Active Substance: ETANERCEPT
     Dosage: UNK
     Route: 065
  4. ARAVA [Concomitant]
     Active Substance: LEFLUNOMIDE
     Dosage: 1 TABLET (20 MG), 1X/DAY
  5. RIVOTRIL [Concomitant]
     Active Substance: CLONAZEPAM
     Dosage: 3 MG, 2X/DAY
     Dates: start: 201409
  6. PREDNISONE [Concomitant]
     Active Substance: PREDNISONE
     Dosage: 5 MG, UNK
  7. ANTI INFLAMMATORY [Concomitant]
     Dosage: UNK
  8. ACETAMINOPHEN\CAFFEINE\CARISOPRODOL\DICLOFENAC SODIUM [Concomitant]
     Active Substance: ACETAMINOPHEN\CAFFEINE\CARISOPRODOL\DICLOFENAC SODIUM
     Dosage: UNK
  9. METAMIZOLE SODIUM [Concomitant]
     Active Substance: METAMIZOLE SODIUM
     Dosage: UNK
  10. KETOPROFEN [Concomitant]
     Active Substance: KETOPROFEN
     Dosage: UNK

REACTIONS (39)
  - Drug dose omission by device [Unknown]
  - Device issue [Unknown]
  - Product dispensing issue [Unknown]
  - Incorrect disposal of product [Unknown]
  - Illness [Unknown]
  - Irritability [Unknown]
  - Depressed mood [Unknown]
  - Fatigue [Unknown]
  - Fear [Unknown]
  - Acarodermatitis [Recovered/Resolved]
  - Skin discolouration [Unknown]
  - Pain [Unknown]
  - Gait disturbance [Unknown]
  - Drug hypersensitivity [Unknown]
  - Affective disorder [Unknown]
  - Somnolence [Unknown]
  - Joint swelling [Unknown]
  - Memory impairment [Unknown]
  - Nervousness [Unknown]
  - Hepatic pain [Unknown]
  - Dandruff [Unknown]
  - Skin wound [Unknown]
  - Dermatitis [Unknown]
  - Weight decreased [Unknown]
  - Therapeutic product effect delayed [Unknown]
  - Influenza [Unknown]
  - Viral infection [Unknown]
  - Psoriasis [Unknown]
  - Pneumonia [Unknown]
  - Sinusitis [Unknown]
  - Bedridden [Unknown]
  - Gait inability [Unknown]
  - Bipolar disorder [Unknown]
  - Apnoea [Unknown]
  - COVID-19 [Recovered/Resolved]
  - Urticaria [Unknown]
  - Dyspnoea [Unknown]
  - Arthralgia [Unknown]
  - Pyrexia [Unknown]

NARRATIVE: CASE EVENT DATE: 20130601
